FAERS Safety Report 4582593-7 (Version None)
Quarter: 2005Q1

REPORT INFORMATION
  Report Type: 
  Country: None (occurrence: None)
  Receive Date: 20050211
  Receipt Date: 20050211
  Transmission Date: 20050727
  Serious: Yes (Other)
  Sender: FDA-Public Use
  Company Number: None

PATIENT
  Age: 28 Year
  Sex: Female
  Weight: 50.8029 kg

DRUGS (1)
  1. ZOVIA 1/35E-21 [Suspect]
     Dosage: 1 TAB A DAY ORAL
     Route: 048

REACTIONS (3)
  - METRORRHAGIA [None]
  - NAUSEA [None]
  - SKIN DISORDER [None]
